FAERS Safety Report 5990777-6 (Version None)
Quarter: 2008Q4

REPORT INFORMATION
  Report Type: 
  Country: None (occurrence: None)
  Receive Date: 20081209
  Receipt Date: 20081124
  Transmission Date: 20090506
  Serious: Yes (Hospitalization)
  Sender: FDA-Public Use
  Company Number: KV200800501

PATIENT
  Age: 47 Year
  Sex: Female
  Weight: 77.1 kg

DRUGS (6)
  1. MORPHINE SULFATE [Suspect]
     Indication: BACK PAIN
     Dosage: 30 MG, Q12HRS, ORAL; 30 MG, Q4-6HRS, ORAL
     Route: 048
     Dates: start: 20070101, end: 20080110
  2. MORPHINE SULFATE [Suspect]
     Indication: BACK PAIN
     Dosage: 30 MG, Q12HRS, ORAL; 30 MG, Q4-6HRS, ORAL
     Route: 048
     Dates: start: 20070101, end: 20080110
  3. VISTARIL /00058402/ (HYDROXYZINE HYDROCHLORIDE) [Concomitant]
  4. SOMA (CARISOPRODOL) , 350 MG [Concomitant]
  5. VERAPAMIL (VERAPAMIL) , 180 MG [Concomitant]
  6. FENTANYL /00174602/ (FENTANYL CITRATE) [Concomitant]

REACTIONS (2)
  - OVERDOSE [None]
  - PRODUCT QUALITY ISSUE [None]
